FAERS Safety Report 4805597-5 (Version None)
Quarter: 2005Q4

REPORT INFORMATION
  Report Type: 
  Country: None (occurrence: None)
  Receive Date: 20051021
  Receipt Date: 20051007
  Transmission Date: 20060501
  Serious: Yes (Other)
  Sender: FDA-Public Use
  Company Number: PHBS2005BR14915

PATIENT
  Age: 57 Year
  Sex: Female

DRUGS (2)
  1. CODATEN [Suspect]
     Indication: NEURALGIA
     Route: 048
     Dates: start: 20050901
  2. TEGRETOL [Suspect]
     Indication: TRIGEMINAL NERVE DISORDER
     Dosage: 200 MG/DAY
     Route: 048
     Dates: start: 20050901

REACTIONS (3)
  - EATING DISORDER [None]
  - PHARYNGEAL OEDEMA [None]
  - SWOLLEN TONGUE [None]
